FAERS Safety Report 8883296 (Version 7)
Quarter: 2013Q4

REPORT INFORMATION
  Report Type: Spontaneous
  Country: US (occurrence: US)
  Receive Date: 20121102
  Receipt Date: 20131217
  Transmission Date: 20140711
  Serious: Yes (Hospitalization, Disabling, Other)
  Sender: FDA-Public Use
  Company Number: US-009507513-1210USA010381

PATIENT
  Sex: Female
  Weight: 59.48 kg

DRUGS (9)
  1. FOSAMAX [Suspect]
     Indication: OSTEOPOROSIS
     Dosage: 70 MG, UNK
     Route: 048
     Dates: start: 1996, end: 20080625
  2. FOSAMAX [Suspect]
     Indication: OSTEOPOROSIS
     Dosage: 70 MG, UNK
     Route: 048
     Dates: end: 20110119
  3. ALENDRONATE SODIUM [Suspect]
     Indication: OSTEOPOROSIS
     Dosage: 70 MG, UNK
     Route: 048
     Dates: start: 20080218, end: 201006
  4. VITAMINS (UNSPECIFIED) [Concomitant]
     Dosage: UNK, QD
     Dates: start: 1990
  5. SYNTHROID [Concomitant]
     Indication: HYPOTHYROIDISM
     Dosage: 0.1 MG, QD
     Dates: start: 1994
  6. OGEN [Concomitant]
     Dosage: 1.5 MG, QD
     Dates: start: 1988, end: 20120720
  7. PROVERA [Concomitant]
     Indication: OSTEOPOROSIS
     Dosage: 10 MG, QD
     Dates: start: 1988, end: 20120720
  8. CALCIUM (UNSPECIFIED) [Concomitant]
     Indication: OSTEOPOROSIS
     Dosage: 1200-1500 MG, QD
  9. ZYRTEC-D [Concomitant]
     Dosage: 1 QD

REACTIONS (21)
  - Intramedullary rod insertion [Not Recovered/Not Resolved]
  - Femur fracture [Not Recovered/Not Resolved]
  - Stress fracture [Not Recovered/Not Resolved]
  - Low turnover osteopathy [Not Recovered/Not Resolved]
  - Osteoporosis [Not Recovered/Not Resolved]
  - Surgery [Unknown]
  - Femur fracture [Not Recovered/Not Resolved]
  - Infection [Unknown]
  - Pain [Unknown]
  - Infection [Unknown]
  - Vitamin D deficiency [Unknown]
  - Incisional drainage [Unknown]
  - Anaemia postoperative [Recovering/Resolving]
  - Inappropriate schedule of drug administration [Unknown]
  - Muscle strain [Unknown]
  - Upper limb fracture [Unknown]
  - Turner^s syndrome [Unknown]
  - Hyperglycaemia [Unknown]
  - Hyperlipidaemia [Unknown]
  - Osteopenia [Unknown]
  - Rash [Unknown]
